FAERS Safety Report 5658429-X (Version None)
Quarter: 2008Q1

REPORT INFORMATION
  Report Type: 
  Country: None (occurrence: None)
  Receive Date: 20080310
  Receipt Date: 20070220
  Transmission Date: 20080703
  Serious: No
  Sender: FDA-Public Use
  Company Number: US-BAYER-200710560BCC

PATIENT
  Age: 44 Year
  Sex: Male
  Weight: 89 kg

DRUGS (7)
  1. ALEVE [Suspect]
     Indication: HEADACHE
     Dosage: TOTAL DAILY DOSE: 880 MG  UNIT DOSE: 220 MG
     Route: 048
     Dates: start: 20070219
  2. ALEVE [Suspect]
     Dosage: TOTAL DAILY DOSE: 440 MG  UNIT DOSE: 220 MG
     Route: 048
     Dates: start: 20070220
  3. OXYCODONE HCL [Concomitant]
  4. PROCHLORPERAZINE [Concomitant]
  5. ZYPREXA [Concomitant]
  6. CHLORPROMAZINE [Concomitant]
  7. LIDOCAINE H [Concomitant]

REACTIONS (1)
  - VOMITING [None]
